FAERS Safety Report 9330528 (Version 1)
Quarter: 2013Q2

REPORT INFORMATION
  Report Type: Spontaneous
  Country: US (occurrence: US)
  Receive Date: 20130605
  Receipt Date: 20130605
  Transmission Date: 20140414
  Serious: Yes (Hospitalization, Congenital Anomaly, Other)
  Sender: FDA-Public Use
  Company Number: US-SUN PHARMACEUTICAL INDUSTRIES LTD-2013SUN00665

PATIENT
  Age: 25 Year
  Sex: Female

DRUGS (2)
  1. LITHIUM CARBONATE TABLETS, USP 300MG [Suspect]
     Indication: SCHIZOPHRENIA
     Dosage: 900 MG, UNK
     Route: 065
  2. CLOZAPINE [Concomitant]
     Dosage: 200 MG, UNK

REACTIONS (2)
  - Premature delivery [None]
  - Exposure during pregnancy [None]
